FAERS Safety Report 7417180-6 (Version None)
Quarter: 2011Q2

REPORT INFORMATION
  Report Type: 
  Country: None (occurrence: None)
  Receive Date: 20110415
  Receipt Date: 20110224
  Transmission Date: 20111010
  Serious: Yes (Hospitalization, Disabling)
  Sender: FDA-Public Use
  Company Number: US-BAYER-201041469NA

PATIENT
  Age: 19 Year
  Sex: Female
  Weight: 77.098 kg

DRUGS (25)
  1. NEXIUM [Concomitant]
     Dosage: 40 MG, UNK
     Route: 048
     Dates: start: 20070412
  2. YAZ [Suspect]
     Indication: PREMENSTRUAL SYNDROME
  3. XIFAXAN [Concomitant]
     Dosage: 200 MG, UNK
     Route: 048
     Dates: start: 20061020
  4. ZELNORM [Concomitant]
     Dosage: 6 MG, UNK
     Route: 048
     Dates: start: 20061020
  5. TOBRADEX [Concomitant]
     Dosage: UNK
     Route: 048
     Dates: start: 20070622
  6. NULEV [Concomitant]
     Dosage: 0.125 MG, UNK
     Route: 048
     Dates: start: 20070913
  7. ACETAMINOPHEN AND HYDROCODONE BITARTRATE [Concomitant]
     Dosage: UNK MG, UNK
     Route: 048
     Dates: start: 20071120
  8. PROMETHAZINE - CODEINE [CODEINE PHOSPHATE,PROMETHAZINE HYDROCHLORIDE] [Concomitant]
     Dosage: UNK
     Route: 048
     Dates: start: 20080916
  9. YAZ [Suspect]
     Indication: ACNE
  10. YAZ [Suspect]
     Indication: MENSTRUATION IRREGULAR
  11. YASMIN [Suspect]
     Indication: MENSTRUATION IRREGULAR
  12. HYOSCYAMINE [Concomitant]
     Dosage: 0.125 MG, UNK
     Route: 048
     Dates: start: 20070412
  13. OCELLA [Suspect]
     Indication: CONTRACEPTION
     Dosage: UNK
     Dates: start: 20050330, end: 20081120
  14. YAZ [Suspect]
     Indication: ORAL CONTRACEPTION
     Dosage: UNK
     Dates: start: 20050330, end: 20081120
  15. YASMIN [Suspect]
     Indication: ACNE
     Dosage: UNK
     Dates: start: 20050330, end: 20081120
  16. LEVAQUIN [Concomitant]
     Dosage: 500 MG, UNK
     Route: 048
     Dates: start: 20070511
  17. SKELAXIN [Concomitant]
     Dosage: 800 MG, UNK
     Route: 048
     Dates: start: 20080516
  18. OCELLA [Suspect]
     Indication: PREMENSTRUAL SYNDROME
  19. FLUCONAZOLE [Concomitant]
     Dosage: 150 MG, UNK
     Route: 048
     Dates: start: 20071112
  20. NAPROXEN SODIUM [Concomitant]
     Dosage: 550 MG, UNK
     Route: 048
     Dates: start: 20080916
  21. YASMIN [Suspect]
     Indication: CONTRACEPTION
  22. YASMIN [Suspect]
     Indication: PREMENSTRUAL SYNDROME
  23. OCELLA [Suspect]
     Indication: MENSTRUATION IRREGULAR
  24. AMOXICILLIN [Concomitant]
     Dosage: 500 MG, UNK
     Route: 048
     Dates: start: 20071120
  25. CHERATUSSIN [AMMONIUM CHLORIDE,DEXTROMETHORPHAN HYDROBROMIDE,SODIUM CI [Concomitant]
     Dosage: UNK
     Route: 048
     Dates: start: 20080718

REACTIONS (2)
  - ARTERIAL THROMBOSIS LIMB [None]
  - INJURY [None]
